FAERS Safety Report 16822319 (Version 1)
Quarter: 2019Q3

REPORT INFORMATION
  Report Type: Spontaneous
  Country: US (occurrence: US)
  Receive Date: 20190918
  Receipt Date: 20190918
  Transmission Date: 20191005
  Serious: No
  Sender: FDA-Public Use
  Company Number: US-009507513-1909USA001776

PATIENT
  Age: 84 Year
  Sex: Male

DRUGS (2)
  1. PROVENTIL [Suspect]
     Active Substance: ALBUTEROL
     Indication: ASTHMA
     Dosage: AS NEEDED, ONCE OR TWICE A DAY
     Route: 055
     Dates: start: 201809
  2. SYMBICORT [Concomitant]
     Active Substance: BUDESONIDE\FORMOTEROL FUMARATE DIHYDRATE
     Dosage: UNK

REACTIONS (3)
  - Product quality issue [Unknown]
  - Chest discomfort [Recovered/Resolved]
  - Poor quality device used [Unknown]

NARRATIVE: CASE EVENT DATE: 20190902
